FAERS Safety Report 6233674-3 (Version None)
Quarter: 2009Q2

REPORT INFORMATION
  Report Type: 
  Country: None (occurrence: None)
  Receive Date: 20090612
  Receipt Date: 20090604
  Transmission Date: 20091009
  Serious: Yes (Hospitalization)
  Sender: FDA-Public Use
  Company Number: SPV1-2009-01138

PATIENT
  Age: 76 Year
  Sex: Male

DRUGS (1)
  1. FOSRENOL [Suspect]
     Indication: HYPERPHOSPHATAEMIA
     Dosage: IMMEDIATELY AFTER MEALS, ORAL
     Route: 048
     Dates: start: 20090520

REACTIONS (4)
  - FALL [None]
  - NAUSEA [None]
  - TRAUMATIC FRACTURE [None]
  - VOMITING [None]
